FAERS Safety Report 8068973-6 (Version None)
Quarter: 2012Q1

REPORT INFORMATION
  Report Type: 
  Country: None (occurrence: None)
  Receive Date: 20120118
  Receipt Date: 20120106
  Transmission Date: 20120608
  Serious: Yes (Hospitalization, Other)
  Sender: FDA-Public Use
  Company Number: 2011MA018177

PATIENT
  Age: 32 Year
  Sex: Male

DRUGS (4)
  1. IBUPROFEN [Suspect]
     Indication: INFLUENZA
     Dosage: 1200 MG; QD
  2. ASCORBIC ACID [Suspect]
     Indication: INFLUENZA
     Dosage: 500 MG; BID; PO
     Route: 048
  3. ACETAMINOPHEN [Suspect]
     Indication: INFLUENZA
     Dosage: 650 MG; BID; PO
     Route: 048
  4. CODEINE SULFATE [Suspect]
     Indication: INFLUENZA
     Dosage: 10 MG; BID; PO
     Route: 048

REACTIONS (2)
  - TOXIC SKIN ERUPTION [None]
  - HEPATITIS CHOLESTATIC [None]
